FAERS Safety Report 7040619-5 (Version None)
Quarter: 2010Q4

REPORT INFORMATION
  Report Type: 
  Country: None (occurrence: None)
  Receive Date: 20101012
  Receipt Date: 20101001
  Transmission Date: 20110411
  Serious: Yes (Hospitalization)
  Sender: FDA-Public Use
  Company Number: US-AMGEN-KDL442231

PATIENT
  Sex: Female

DRUGS (2)
  1. ENBREL [Suspect]
     Indication: RHEUMATOID ARTHRITIS
     Route: 058
     Dates: start: 20000101, end: 20100621
  2. METHOTREXATE [Concomitant]
     Route: 048

REACTIONS (4)
  - ARTHROPATHY [None]
  - POST PROCEDURAL INFECTION [None]
  - TENDON OPERATION [None]
  - TENDON SHEATH LESION EXCISION [None]
